FAERS Safety Report 7222665-1 (Version None)
Quarter: 2011Q1

REPORT INFORMATION
  Report Type: 
  Country: None (occurrence: None)
  Receive Date: 20110106
  Receipt Date: 20110106
  Transmission Date: 20110831
  Serious: Yes (Other)
  Sender: FDA-Public Use
  Company Number: None

PATIENT
  Sex: Male

DRUGS (2)
  1. LUPRON [Suspect]
     Indication: PROSTATE CANCER
     Dates: start: 20100512
  2. LUPRON [Suspect]
     Indication: PROSTATE CANCER
     Dates: start: 20100430

REACTIONS (7)
  - DYSPNOEA [None]
  - DECREASED APPETITE [None]
  - HYPERHIDROSIS [None]
  - FATIGUE [None]
  - FEELING ABNORMAL [None]
  - HOT FLUSH [None]
  - INSOMNIA [None]
